FAERS Safety Report 13832244 (Version 1)
Quarter: 2017Q3

REPORT INFORMATION
  Report Type: Report from Study
  Country: US (occurrence: US)
  Receive Date: 20170804
  Receipt Date: 20170804
  Transmission Date: 20171127
  Serious: Yes (Death, Life-Threatening, Other)
  Sender: FDA-Public Use
  Company Number: US-ROCHE-1922269

PATIENT

DRUGS (4)
  1. ALTEPLASE. [Suspect]
     Active Substance: ALTEPLASE
     Indication: MYOCARDIAL INFARCTION
     Route: 042
  2. ALTEPLASE. [Suspect]
     Active Substance: ALTEPLASE
     Route: 040
  3. HEPARIN [Concomitant]
     Active Substance: HEPARIN SODIUM
     Dosage: INITIATED AT 1000 U/HR FOR PATIENTS WEIGHING 85 KG AND 1200 U/HR FOR THOSE WEIGHING }85 KG, AND THES
     Route: 042
  4. ASPIRIN. [Concomitant]
     Active Substance: ASPIRIN
     Dosage: AT LEAST 160 MG OF ORAL ASPIRIN BEFORE CARDIAC CATHETERIZATION AND WERE MAINTAINED ON AT LEAST 160 M
     Route: 048

REACTIONS (6)
  - Death [Fatal]
  - Cerebrovascular accident [Unknown]
  - Myocardial ischaemia [Unknown]
  - Myocardial infarction [Unknown]
  - Haemorrhage [Unknown]
  - Cerebral haemorrhage [Unknown]
